FAERS Safety Report 13495685 (Version 1)
Quarter: 2017Q2

REPORT INFORMATION
  Report Type: Spontaneous
  Country: US (occurrence: US)
  Receive Date: 20170428
  Receipt Date: 20170428
  Transmission Date: 20170830
  Serious: Yes (Hospitalization)
  Sender: FDA-Public Use
  Company Number: US-LPDUSPRD-20170507

PATIENT
  Age: 71 Year
  Sex: Female

DRUGS (4)
  1. KAYEXELATE [Concomitant]
     Dosage: DOSE UNKNOWN
     Route: 048
  2. INSULIN [Concomitant]
     Active Substance: INSULIN NOS
     Dosage: DOSE UNKNOWN
     Route: 042
  3. DIGOXIN. [Suspect]
     Active Substance: DIGOXIN
     Dosage: DOSE UNKNOWN
     Route: 065
  4. CALCIUM GLUCONATE INJECTION, USP (3900-25) [Suspect]
     Active Substance: CALCIUM GLUCONATE
     Dosage: DOSE UNKNOWN
     Route: 042

REACTIONS (4)
  - Ischaemic contracture of the left ventricle [Recovered/Resolved]
  - Toxicity to various agents [Recovered/Resolved]
  - Cardiac arrest [Recovered/Resolved]
  - Condition aggravated [Unknown]
